FAERS Safety Report 12697403 (Version 1)
Quarter: 2016Q3

REPORT INFORMATION
  Report Type: Spontaneous
  Country: US (occurrence: None)
  Receive Date: 20160829
  Receipt Date: 20160829
  Transmission Date: 20161109
  Serious: No
  Sender: FDA-Public Use
  Company Number: None

PATIENT
  Age: 33 Year
  Sex: Female
  Weight: 65.77 kg

DRUGS (9)
  1. DECADRON [Suspect]
     Active Substance: DEXAMETHASONE
     Indication: HYPERSENSITIVITY
     Dates: start: 20160826, end: 20160826
  2. TRAZODONE [Concomitant]
     Active Substance: TRAZODONE HYDROCHLORIDE
  3. BUSPIRONE [Concomitant]
     Active Substance: BUSPIRONE HYDROCHLORIDE
  4. DECADRON [Suspect]
     Active Substance: DEXAMETHASONE
     Indication: PHARYNGEAL OEDEMA
     Dates: start: 20160826, end: 20160826
  5. XANAX [Concomitant]
     Active Substance: ALPRAZOLAM
  6. DECADRON [Suspect]
     Active Substance: DEXAMETHASONE
     Indication: MOUTH SWELLING
     Dates: start: 20160826, end: 20160826
  7. NORCO [Concomitant]
     Active Substance: ACETAMINOPHEN\HYDROCODONE BITARTRATE
  8. ZANAFLEX [Concomitant]
     Active Substance: TIZANIDINE HYDROCHLORIDE
  9. METOPROLOL TARTRATE. [Concomitant]
     Active Substance: METOPROLOL TARTRATE

REACTIONS (3)
  - Pain [None]
  - Presyncope [None]
  - Fear [None]

NARRATIVE: CASE EVENT DATE: 20160826
